FAERS Safety Report 7712419-1 (Version None)
Quarter: 2011Q3

REPORT INFORMATION
  Report Type: 
  Country: None (occurrence: None)
  Receive Date: 20110826
  Receipt Date: 20110823
  Transmission Date: 20111222
  Serious: Yes (Death, Hospitalization, Other)
  Sender: FDA-Public Use
  Company Number: VE-PFIZER INC-2011196350

PATIENT
  Age: 84 Year
  Sex: Female

DRUGS (2)
  1. PLAVIX [Concomitant]
     Dosage: 75 MG, 1X/DAY
     Route: 048
  2. ZOLOFT [Suspect]
     Dosage: UNK
     Route: 048

REACTIONS (4)
  - DYSPNOEA [None]
  - CONSTIPATION [None]
  - RESPIRATORY ARREST [None]
  - BLOOD GLUCOSE INCREASED [None]
